FAERS Safety Report 19238212 (Version 1)
Quarter: 2021Q2

REPORT INFORMATION
  Report Type: Spontaneous
  Country: US (occurrence: US)
  Receive Date: 20210510
  Receipt Date: 20210510
  Transmission Date: 20210717
  Serious: Yes (Other)
  Sender: FDA-Public Use
  Company Number: None

PATIENT
  Age: 70 Year
  Sex: Male
  Weight: 91 kg

DRUGS (1)
  1. LUPRON DEPOT [Suspect]
     Active Substance: LEUPROLIDE ACETATE

REACTIONS (6)
  - Drug effect less than expected [None]
  - Blood testosterone increased [None]
  - Poor quality product administered [None]
  - Product administration error [None]
  - Product preparation issue [None]
  - Prostatic specific antigen decreased [None]

NARRATIVE: CASE EVENT DATE: 20200611
